FAERS Safety Report 9870898 (Version 2)
Quarter: 2014Q1

REPORT INFORMATION
  Report Type: Spontaneous
  Country: DE (occurrence: None)
  Receive Date: 20140203
  Receipt Date: 20140210
  Transmission Date: 20141002
  Serious: Yes (Life-Threatening, Hospitalization)
  Sender: FDA-Public Use
  Company Number: AUR-APL-2014-00735

PATIENT
  Age: 49 Year
  Sex: Male
  Weight: 82 kg

DRUGS (1)
  1. SUMATRIPTAN [Suspect]
     Indication: OFF LABEL USE
     Route: 048

REACTIONS (3)
  - Angina unstable [None]
  - Arteriospasm coronary [None]
  - Electrocardiogram ST segment elevation [None]
